FAERS Safety Report 24895552 (Version 5)
Quarter: 2025Q3

REPORT INFORMATION
  Report Type: Report from Study
  Country: EU (occurrence: EU)
  Receive Date: 20250128
  Receipt Date: 20250721
  Transmission Date: 20251021
  Serious: Yes (Life-Threatening, Hospitalization, Other)
  Sender: BRISTOL-MYERS SQUIBB COMPANY
  Company Number: EU-BRISTOL-MYERS SQUIBB COMPANY-2025-009696

PATIENT
  Age: 1 Day
  Sex: Female
  Weight: 1.785 kg

DRUGS (5)
  1. ZEPOSIA [Suspect]
     Active Substance: OZANIMOD HYDROCHLORIDE
     Indication: Product used for unknown indication
     Route: 064
     Dates: start: 202204, end: 20240613
  2. ASPIRIN [Suspect]
     Active Substance: ASPIRIN
     Indication: Product used for unknown indication
     Route: 064
     Dates: start: 20240613, end: 20241127
  3. ERGOCALCIFEROL [Concomitant]
     Active Substance: ERGOCALCIFEROL
     Indication: Product used for unknown indication
     Dosage: 1 DF=20000 U
     Route: 064
     Dates: start: 20141015, end: 20241127
  4. MINERALS\VITAMINS [Concomitant]
     Active Substance: MINERALS\VITAMINS
     Indication: Product used for unknown indication
     Route: 064
     Dates: start: 20240613, end: 20241127
  5. VITAMIN K [Concomitant]
     Active Substance: PHYTONADIONE
     Indication: Prophylaxis
     Route: 048
     Dates: start: 20241127, end: 20250101

REACTIONS (5)
  - Premature baby [Unknown]
  - Neonatal respiratory distress [Recovering/Resolving]
  - Foetal exposure during pregnancy [Unknown]
  - Hyperbilirubinaemia neonatal [Recovered/Resolved]
  - Device related infection [Recovered/Resolved]

NARRATIVE: CASE EVENT DATE: 20240101
